FAERS Safety Report 15647426 (Version 2)
Quarter: 2019Q4

REPORT INFORMATION
  Report Type: Spontaneous
  Country: TN (occurrence: TN)
  Receive Date: 20181122
  Receipt Date: 20191010
  Transmission Date: 20200122
  Serious: Yes (Other)
  Sender: FDA-Public Use
  Company Number: TN-MACLEODS PHARMACEUTICALS US LTD-MAC2018018706

PATIENT

DRUGS (6)
  1. ESCITALOPRAM OXALATE. [Suspect]
     Active Substance: ESCITALOPRAM OXALATE
     Indication: PRODUCT USED FOR UNKNOWN INDICATION
     Dosage: UNK
     Route: 065
     Dates: start: 201707, end: 2017
  2. PARACETAMOL [Suspect]
     Active Substance: ACETAMINOPHEN
     Indication: TOOTHACHE
     Dosage: UNK
     Route: 065
     Dates: start: 201801
  3. LEVOMEPROMAZINE [Suspect]
     Active Substance: LEVOMEPROMAZINE
     Indication: PRODUCT USED FOR UNKNOWN INDICATION
     Dosage: UNK
     Route: 065
     Dates: start: 201707, end: 2017
  4. ESCITALOPRAM OXALATE. [Suspect]
     Active Substance: ESCITALOPRAM OXALATE
     Dosage: UNK
     Route: 065
     Dates: start: 201709
  5. CARBAMAZEPINE. [Suspect]
     Active Substance: CARBAMAZEPINE
     Indication: PRODUCT USED FOR UNKNOWN INDICATION
     Dosage: UNK
     Route: 065
     Dates: start: 201707, end: 2017
  6. AMOXICILLIN. [Suspect]
     Active Substance: AMOXICILLIN
     Indication: TOOTHACHE
     Dosage: UNK
     Route: 065
     Dates: start: 201801

REACTIONS (7)
  - Erythema [Unknown]
  - Pruritus [Unknown]
  - Pyrexia [Unknown]
  - Oral mucosal erythema [Unknown]
  - Drug reaction with eosinophilia and systemic symptoms [Recovering/Resolving]
  - Hypersensitivity [Unknown]
  - Pruritus [Unknown]

NARRATIVE: CASE EVENT DATE: 2017
